FAERS Safety Report 4870395-3 (Version None)
Quarter: 2005Q4

REPORT INFORMATION
  Report Type: 
  Country: None (occurrence: None)
  Receive Date: 20051228
  Receipt Date: 20051208
  Transmission Date: 20060501
  Serious: Yes (Other)
  Sender: FDA-Public Use
  Company Number: US200512002057

PATIENT
  Age: 27 Year
  Sex: Male

DRUGS (2)
  1. CYMBALTA [Suspect]
     Indication: PAIN
     Dosage: 60 MG
     Dates: start: 20050401, end: 20051001
  2. VICODIN [Concomitant]

REACTIONS (3)
  - CLUSTER HEADACHE [None]
  - CONVULSION [None]
  - LOSS OF CONSCIOUSNESS [None]
